APPROVED DRUG PRODUCT: CHILDREN'S ZYRTEC ALLERGY
Active Ingredient: CETIRIZINE HYDROCHLORIDE
Strength: 2.5MG
Dosage Form/Route: TABLET, CHEWABLE;ORAL
Application: N021621 | Product #007
Applicant: KENVUE BRANDS LLC
Approved: Nov 30, 2020 | RLD: Yes | RS: No | Type: OTC